FAERS Safety Report 8146718-9 (Version None)
Quarter: 2012Q1

REPORT INFORMATION
  Report Type: 
  Country: None (occurrence: None)
  Receive Date: 20120217
  Receipt Date: 20110928
  Transmission Date: 20120608
  Serious: No
  Sender: FDA-Public Use
  Company Number: US-ABBOTT-11P-163-0858404-00

PATIENT
  Sex: Male
  Weight: 104.42 kg

DRUGS (4)
  1. SIMCOR [Suspect]
     Dosage: 1000/40MG AT BEDTIME BID
  2. SIMCOR [Suspect]
     Dosage: 1000/40MG
  3. SIMCOR [Suspect]
     Indication: BLOOD TRIGLYCERIDES INCREASED
     Dosage: 1000/40MG
     Dates: start: 20110401
  4. ASPIRIN [Concomitant]
     Indication: PRODUCT USED FOR UNKNOWN INDICATION

REACTIONS (7)
  - ABNORMAL DREAMS [None]
  - ERYTHEMA [None]
  - FEELING HOT [None]
  - INSOMNIA [None]
  - BLOOD CHOLESTEROL ABNORMAL [None]
  - FLUSHING [None]
  - URTICARIA [None]
